FAERS Safety Report 10469014 (Version 1)
Quarter: 2014Q3

REPORT INFORMATION
  Report Type: Spontaneous
  Country: US (occurrence: US)
  Receive Date: 20140923
  Receipt Date: 20140923
  Transmission Date: 20150326
  Serious: No
  Sender: FDA-Public Use
  Company Number: US-BIOGENIDEC-2014BI095399

PATIENT
  Sex: Male

DRUGS (1)
  1. TECFIDERA [Suspect]
     Active Substance: DIMETHYL FUMARATE
     Indication: MULTIPLE SCLEROSIS
     Dates: start: 2014

REACTIONS (7)
  - Muscular weakness [Not Recovered/Not Resolved]
  - Head injury [Recovered/Resolved]
  - Loss of control of legs [Not Recovered/Not Resolved]
  - Dysstasia [Not Recovered/Not Resolved]
  - Humidity intolerance [Not Recovered/Not Resolved]
  - Fall [Recovered/Resolved]
  - Central nervous system lesion [Unknown]
